FAERS Safety Report 4852250-8 (Version None)
Quarter: 2005Q4

REPORT INFORMATION
  Report Type: 
  Country: None (occurrence: None)
  Receive Date: 20051213
  Receipt Date: 20050425
  Transmission Date: 20060501
  Serious: Yes (Life-Threatening, Other)
  Sender: FDA-Public Use
  Company Number: GBWYE613725APR05

PATIENT
  Sex: Female

DRUGS (7)
  1. ENBREL [Suspect]
     Indication: RHEUMATOID ARTHRITIS
     Dosage: UNKNOWN
     Route: 058
     Dates: start: 20010325, end: 20050411
  2. METHOTREXATE [Suspect]
     Indication: RHEUMATOID ARTHRITIS
     Route: 048
     Dates: start: 19960701, end: 20050411
  3. INDOMETHACIN [Concomitant]
  4. CO-PROXAMOL [Concomitant]
  5. UNSPECIFIED HORMONE REPLACEMENT THERAPY AGENT [Concomitant]
  6. FOLIC ACID [Concomitant]
  7. SULFASALAZINE [Concomitant]

REACTIONS (2)
  - METASTASES TO LIVER [None]
  - METASTATIC BRONCHIAL CARCINOMA [None]
